FAERS Safety Report 25220920 (Version 1)
Quarter: 2025Q2

REPORT INFORMATION
  Report Type: Spontaneous
  Country: US (occurrence: None)
  Receive Date: 20250419
  Receipt Date: 20250419
  Transmission Date: 20250717
  Serious: Yes (Hospitalization)
  Sender: FDA-CTU
  Company Number: None

PATIENT
  Age: 78 Year
  Sex: Female
  Weight: 63.5 kg

DRUGS (2)
  1. FLUOROURACIL [Suspect]
     Active Substance: FLUOROURACIL
     Dates: end: 20250320
  2. LEUCOVORIN [Suspect]
     Active Substance: LEUCOVORIN\LEUCOVORIN CALCIUM
     Dates: end: 20250320

REACTIONS (18)
  - Hypotension [None]
  - Asthenia [None]
  - Syncope [None]
  - Blood pressure systolic decreased [None]
  - Ventricular extrasystoles [None]
  - Supraventricular extrasystoles [None]
  - QRS axis abnormal [None]
  - Defect conduction intraventricular [None]
  - Electrocardiogram ST segment abnormal [None]
  - Electrocardiogram T wave abnormal [None]
  - Aortic arteriosclerosis [None]
  - Atelectasis [None]
  - Pleural effusion [None]
  - Lung opacity [None]
  - Pulmonary oedema [None]
  - Hiatus hernia [None]
  - Hepatic steatosis [None]
  - Diverticulum intestinal [None]

NARRATIVE: CASE EVENT DATE: 20250402
